FAERS Safety Report 7431915-8 (Version None)
Quarter: 2011Q2

REPORT INFORMATION
  Report Type: 
  Country: None (occurrence: None)
  Receive Date: 20110422
  Receipt Date: 20110412
  Transmission Date: 20111010
  Serious: Yes (Other)
  Sender: FDA-Public Use
  Company Number: US-JNJFOC-20110408430

PATIENT

DRUGS (2)
  1. DOXORUBICIN HCL [Suspect]
     Indication: LYMPHOMA
     Dosage: ON DAY 3 OF THE 21-DAY CYCLE
     Route: 042
  2. VORINOSTAT [Suspect]
     Indication: LYMPHOMA
     Dosage: 200, 300 OR 400 MG
     Route: 065

REACTIONS (2)
  - ASPARTATE AMINOTRANSFERASE INCREASED [None]
  - ALANINE AMINOTRANSFERASE INCREASED [None]
